FAERS Safety Report 7127039-X (Version None)
Quarter: 2010Q4

REPORT INFORMATION
  Report Type: 
  Country: None (occurrence: None)
  Receive Date: 20101129
  Receipt Date: 20100101
  Transmission Date: 20110411
  Serious: No
  Sender: FDA-Public Use
  Company Number: US-PFIZER INC-2010000420

PATIENT
  Sex: Male

DRUGS (1)
  1. VIAGRA [Suspect]
     Indication: PENIS DISORDER
     Dosage: UNK
     Route: 048
     Dates: start: 20091231

REACTIONS (3)
  - MEDICATION ERROR [None]
  - PENILE SIZE REDUCED [None]
  - PENIS DISORDER [None]
